FAERS Safety Report 19279959 (Version 1)
Quarter: 2021Q2

REPORT INFORMATION
  Report Type: Spontaneous
  Country: US (occurrence: US)
  Receive Date: 20210520
  Receipt Date: 20210520
  Transmission Date: 20210717
  Serious: No
  Sender: FDA-Public Use
  Company Number: US-MYLANLABS-2021M1026605

PATIENT
  Sex: Female

DRUGS (2)
  1. AZELASTINE HYDROCHLORIDE AND FLUTICASONE PROPIONATE NASAL SPRAY [Suspect]
     Active Substance: AZELASTINE HYDROCHLORIDE\FLUTICASONE PROPIONATE
     Indication: HYPERSENSITIVITY
  2. AZELASTINE HYDROCHLORIDE AND FLUTICASONE PROPIONATE NASAL SPRAY [Suspect]
     Active Substance: AZELASTINE HYDROCHLORIDE\FLUTICASONE PROPIONATE
     Indication: ASTHMA
     Dosage: 137/50 MICROGRAM
     Route: 045

REACTIONS (3)
  - Product quality issue [Recovered/Resolved]
  - Device breakage [Recovered/Resolved]
  - Product use in unapproved indication [Recovered/Resolved]
